FAERS Safety Report 7347625-1 (Version None)
Quarter: 2011Q1

REPORT INFORMATION
  Report Type: 
  Country: None (occurrence: None)
  Receive Date: 20110311
  Receipt Date: 20110302
  Transmission Date: 20110831
  Serious: Yes (Hospitalization)
  Sender: FDA-Public Use
  Company Number: A0882805A

PATIENT
  Age: 64 Year
  Sex: Female
  Weight: 87.7 kg

DRUGS (10)
  1. BENAZEPRIL HYDROCHLORIDE [Concomitant]
  2. CRESTOR [Concomitant]
  3. METFORMIN [Concomitant]
  4. IRON [Concomitant]
  5. HYDROCHLOROTHIAZIDE [Concomitant]
  6. AVANDIA [Suspect]
     Dosage: 8MG PER DAY
     Route: 048
     Dates: start: 20010901, end: 20080501
  7. ISOSORBIDE MONONITRATE [Concomitant]
  8. ASPIRIN [Concomitant]
  9. TOPROL-XL [Concomitant]
  10. ASCORBIC ACID [Concomitant]

REACTIONS (3)
  - CORONARY ARTERY DISEASE [None]
  - ANGINA PECTORIS [None]
  - CARDIAC DISORDER [None]
